FAERS Safety Report 8313074-2 (Version None)
Quarter: 2012Q2

REPORT INFORMATION
  Report Type: 
  Country: None (occurrence: None)
  Receive Date: 20120426
  Receipt Date: 20120418
  Transmission Date: 20120825
  Serious: Yes (Other)
  Sender: FDA-Public Use
  Company Number: US-PFIZER INC-2012096658

PATIENT
  Sex: Female
  Weight: 51.701 kg

DRUGS (8)
  1. XANAX [Suspect]
     Indication: NERVOUSNESS
  2. NICOTROL [Suspect]
     Indication: COUGH
  3. PERCOCET [Concomitant]
     Indication: PAIN
     Dosage: UNK
  4. LYRICA [Suspect]
     Indication: NEURALGIA
     Dosage: 50 MG, UNK
     Route: 048
     Dates: start: 20120301, end: 20120401
  5. PREMPRO [Suspect]
     Indication: MENOPAUSE
     Dosage: 0.3/1.5 MG DAILY
     Route: 048
  6. NEURONTIN [Suspect]
     Dosage: 300 MG, UNK
     Route: 048
  7. NICOTROL [Suspect]
     Indication: BRONCHITIS
     Dosage: UNK
  8. XANAX [Suspect]
     Indication: PANIC ATTACK
     Dosage: UNK
     Route: 048

REACTIONS (9)
  - SKIN LESION [None]
  - NERVE INJURY [None]
  - GAIT DISTURBANCE [None]
  - PRURITUS GENERALISED [None]
  - VISUAL IMPAIRMENT [None]
  - DIZZINESS [None]
  - RASH PAPULAR [None]
  - RASH PUSTULAR [None]
  - RASH [None]
